FAERS Safety Report 8164071-1 (Version None)
Quarter: 2012Q1

REPORT INFORMATION
  Report Type: 
  Country: None (occurrence: None)
  Receive Date: 20120224
  Receipt Date: 20120215
  Transmission Date: 20120608
  Serious: No
  Sender: FDA-Public Use
  Company Number: US-B.I. PHARMACEUTICALS,INC./RIDGEFIELD-2012-BP-02977BP

PATIENT
  Sex: Male

DRUGS (16)
  1. FUROSEMIDE [Concomitant]
     Dosage: 20 MG
     Route: 048
     Dates: start: 19990101
  2. FENOFIBRATE [Concomitant]
     Dosage: 200 MG
     Route: 048
     Dates: start: 19990101
  3. FORTAMET ER [Concomitant]
     Indication: DIABETES MELLITUS
     Dosage: 2000 MG
     Route: 048
     Dates: start: 19990101
  4. NIASPAN [Concomitant]
     Indication: BLOOD CHOLESTEROL INCREASED
     Dosage: 1000 MG
     Route: 048
     Dates: start: 19990101
  5. PRADAXA [Suspect]
     Indication: ATRIAL FIBRILLATION
     Dosage: 300 MG
     Route: 048
     Dates: start: 20111115
  6. PLAVIX [Concomitant]
     Dosage: 75 MG
     Route: 048
     Dates: start: 19990101
  7. GLIPIZIDE [Concomitant]
     Indication: DIABETES MELLITUS
     Dosage: 10 MG
     Route: 048
     Dates: start: 19990101
  8. VITAMIN D [Concomitant]
     Indication: SUPPLEMENTATION THERAPY
     Dosage: 1000 U
     Route: 048
     Dates: start: 19990101
  9. JANUVIA [Concomitant]
     Indication: DIABETES MELLITUS
     Dosage: 100 MG
     Route: 048
     Dates: start: 19990101
  10. TOPROL-XL [Concomitant]
     Indication: HYPERTENSION
     Dosage: 200 MG
     Route: 048
     Dates: start: 19990101
  11. LIPITOR [Concomitant]
     Indication: BLOOD CHOLESTEROL INCREASED
     Dosage: 40 MG
     Route: 048
     Dates: start: 19990101
  12. DILTIAZEM [Concomitant]
     Route: 048
     Dates: start: 19990101
  13. MULTI-VITAMINS [Concomitant]
     Indication: SUPPLEMENTATION THERAPY
     Route: 048
     Dates: start: 19990101
  14. ENALAPRIL MALEATE [Concomitant]
     Indication: HYPERTENSION
     Dosage: 10 MG
     Route: 048
     Dates: start: 19990101
  15. OCUVITE 55 PLUS [Concomitant]
     Indication: SUPPLEMENTATION THERAPY
     Route: 048
     Dates: start: 19990101
  16. BAYER'S COATED ASPIRIN [Concomitant]
     Dosage: 81 MG
     Route: 048
     Dates: start: 19990101

REACTIONS (3)
  - UPPER-AIRWAY COUGH SYNDROME [None]
  - COUGH [None]
  - DYSPEPSIA [None]
